FAERS Safety Report 10548206 (Version 1)
Quarter: 2014Q4

REPORT INFORMATION
  Report Type: Not Available
  Country: SE (occurrence: SE)
  Receive Date: 20141028
  Receipt Date: 20141028
  Transmission Date: 20150529
  Serious: Yes (Life-Threatening, Hospitalization)
  Sender: FDA-Public Use
  Company Number: SE-MUNDIPHARMA DS AND PHARMACOVIGILANCE-DEU-2014-0015592

PATIENT
  Age: 70 Year
  Sex: Female

DRUGS (16)
  1. LYRICA [Concomitant]
     Active Substance: PREGABALIN
  2. MODIODAL [Concomitant]
     Active Substance: MODAFINIL
  3. VISCOTEARS [Concomitant]
     Active Substance: CARBOMER
  4. DOLCONTIN [Suspect]
     Active Substance: MORPHINE
     Dosage: 5 MG, TID
     Route: 048
  5. CALCICHEW-D3 CITRON [Concomitant]
  6. CITALOPRAM BLUEFISH [Concomitant]
  7. FORLAX                             /00754501/ [Concomitant]
     Active Substance: POLYETHYLENE GLYCOL 4000
  8. LANSOPRAZOLE KRKA [Concomitant]
  9. PREDNISOLON PFIZER [Concomitant]
     Active Substance: PREDNISOLONE
  10. MORFIN MEDA [Suspect]
     Active Substance: MORPHINE SULFATE
     Indication: BACK PAIN
     Dosage: 10-20 MG, PRN
     Dates: start: 20140918, end: 20140919
  11. HIPREX [Concomitant]
     Active Substance: METHENAMINE HIPPURATE
  12. SYMBICORT [Concomitant]
     Active Substance: BUDESONIDE\FORMOTEROL FUMARATE DIHYDRATE
  13. ALVEDON [Concomitant]
     Active Substance: ACETAMINOPHEN
  14. AMLODIPIN ACTAVIS                  /00972404/ [Concomitant]
  15. DOLCONTIN [Suspect]
     Active Substance: MORPHINE
     Indication: BACK PAIN
     Dosage: 30 MG, TID
  16. SALURES [Concomitant]
     Active Substance: BENDROFLUMETHIAZIDE

REACTIONS (7)
  - Body temperature increased [Unknown]
  - Oxygen saturation decreased [Recovered/Resolved]
  - Hypotension [Recovered/Resolved]
  - Toxicity to various agents [Recovered/Resolved]
  - Depressed level of consciousness [Recovered/Resolved]
  - Drug ineffective [Recovered/Resolved]
  - Cough [Recovered/Resolved]

NARRATIVE: CASE EVENT DATE: 20140919
